FAERS Safety Report 9438358 (Version 1)
Quarter: 2013Q3

REPORT INFORMATION
  Report Type: Spontaneous
  Country: US (occurrence: US)
  Receive Date: 20130802
  Receipt Date: 20130802
  Transmission Date: 20140515
  Serious: No
  Sender: FDA-Public Use
  Company Number: US-BRISTOL-MYERS SQUIBB COMPANY-17178310

PATIENT
  Age: 68 Year
  Sex: Male
  Weight: 82.99 kg

DRUGS (4)
  1. COUMADIN [Suspect]
     Dosage: INCREASED TO 10MG 2/WEEK
     Dates: start: 2007
  2. DIGOXIN [Concomitant]
  3. MULTAQ [Concomitant]
  4. VITAMINS [Concomitant]

REACTIONS (2)
  - International normalised ratio abnormal [Unknown]
  - Hernia [Unknown]
